FAERS Safety Report 5518538-2 (Version None)
Quarter: 2007Q4

REPORT INFORMATION
  Report Type: 
  Country: None (occurrence: None)
  Receive Date: 20071115
  Receipt Date: 20071105
  Transmission Date: 20080405
  Serious: Yes (Hospitalization)
  Sender: FDA-Public Use
  Company Number: JP-JNJFOC-20071100934

PATIENT
  Age: 81 Year
  Sex: Male

DRUGS (13)
  1. DORIBAX [Suspect]
     Route: 041
  2. DORIBAX [Suspect]
     Indication: PNEUMONIA
     Route: 041
  3. URSO 250 [Concomitant]
     Route: 048
  4. UNIPHYL LA [Concomitant]
     Route: 048
  5. DASEN [Concomitant]
     Route: 048
  6. MUCOSTA [Concomitant]
     Route: 065
  7. TERSIGAN [Concomitant]
     Route: 055
  8. CERCINE [Concomitant]
     Route: 048
  9. LAC-B [Concomitant]
     Route: 048
  10. ISODINE GARGLE [Concomitant]
     Route: 065
  11. FUROSEMIDE [Concomitant]
     Route: 048
  12. BISOLVON [Concomitant]
     Route: 055
  13. MEPTIN [Concomitant]
     Route: 055

REACTIONS (1)
  - BLOOD CREATININE DECREASED [None]
